FAERS Safety Report 19260690 (Version 1)
Quarter: 2021Q2

REPORT INFORMATION
  Report Type: Spontaneous
  Country: CN (occurrence: CN)
  Receive Date: 20210514
  Receipt Date: 20210514
  Transmission Date: 20210717
  Serious: Yes (Other)
  Sender: FDA-Public Use
  Company Number: CN-BAXTER-2021BAX010504

PATIENT
  Age: 10 Year
  Sex: Male
  Weight: 40 kg

DRUGS (12)
  1. MERCAPTOPURINE. [Suspect]
     Active Substance: MERCAPTOPURINE
     Indication: ACUTE LYMPHOCYTIC LEUKAEMIA
     Route: 065
  2. ENDOXAN [Suspect]
     Active Substance: CYCLOPHOSPHAMIDE
     Indication: ACUTE LYMPHOCYTIC LEUKAEMIA
     Route: 065
  3. DEXAMETHASONE. [Suspect]
     Active Substance: DEXAMETHASONE
     Indication: PROPHYLAXIS
     Dosage: DAY 1: DEXAMETHASONE 5MG + METHOTREXATE 12.5MG + CYTARABINE 35MG + SALINE 5ML
     Route: 037
     Dates: start: 20210216, end: 20210216
  4. METHOTREXATE. [Suspect]
     Active Substance: METHOTREXATE
     Indication: PROPHYLAXIS
     Dosage: DAY 1: DEXAMETHASONE 5MG + METHOTREXATE 12.5MG + CYTARABINE 35MG + SALINE 5ML
     Route: 037
     Dates: start: 20210216, end: 20210216
  5. VINDESINE SULFATE [Suspect]
     Active Substance: VINDESINE SULFATE
     Indication: ACUTE LYMPHOCYTIC LEUKAEMIA
     Dosage: CAT REGIMEN: DAY 1?8
     Route: 065
     Dates: start: 20210216, end: 20210223
  6. MERCAPTOPURINE. [Suspect]
     Active Substance: MERCAPTOPURINE
     Dosage: DOSAGE FORM: TABLET; CAT REGIME: DAY 1?7
     Route: 048
     Dates: start: 20210216, end: 20210222
  7. 0.9% SODIUM CHLORIDE INJECTION [Suspect]
     Active Substance: SODIUM CHLORIDE
     Indication: MEDICATION DILUTION
     Dosage: DAY 1: DEXAMETHASONE 5MG + METHOTREXATE 12.5MG + CYTARABINE 35MG + SALINE 5ML
     Route: 037
     Dates: start: 20210216, end: 20210216
  8. CYTOSAR [Suspect]
     Active Substance: CYTARABINE
     Dosage: DAY 1: DEXAMETHASONE 5MG + METHOTREXATE 12.5MG + CYTARABINE 35MG + SALINE 5ML
     Route: 037
     Dates: start: 20210216, end: 20210216
  9. PEGASPARGASE [Suspect]
     Active Substance: PEGASPARGASE
     Indication: ACUTE LYMPHOCYTIC LEUKAEMIA
     Dosage: CAT REGIMEN: DAY 1
     Route: 058
     Dates: start: 20210216, end: 20210216
  10. ENDOXAN [Suspect]
     Active Substance: CYCLOPHOSPHAMIDE
     Dosage: CAT REGIMEN: DAY 1
     Route: 041
     Dates: start: 20210216, end: 20210216
  11. CYTOSAR [Suspect]
     Active Substance: CYTARABINE
     Indication: ACUTE LYMPHOCYTIC LEUKAEMIA
     Route: 065
  12. CYTOSAR [Suspect]
     Active Substance: CYTARABINE
     Indication: PROPHYLAXIS
     Dosage: CAT REGIMEN; DAY 1?8
     Route: 058
     Dates: start: 20210216, end: 20210223

REACTIONS (2)
  - Myelosuppression [Recovered/Resolved]
  - Myelosuppression [Recovering/Resolving]

NARRATIVE: CASE EVENT DATE: 20210302
